FAERS Safety Report 8821513 (Version 1)
Quarter: 2012Q4

REPORT INFORMATION
  Report Type: 
  Country: CN (occurrence: CN)
  Receive Date: 20121002
  Receipt Date: 20121002
  Transmission Date: 20130627
  Serious: Yes (Hospitalization, Other)
  Sender: FDA-Public Use
  Company Number: CN-PFIZER INC-2012242876

PATIENT
  Age: 12 Year
  Sex: Male

DRUGS (6)
  1. IBUPROFEN [Suspect]
     Indication: PYREXIA
     Route: 048
     Dates: start: 20080621, end: 20080621
  2. AZITHROMYCIN [Suspect]
     Indication: PYREXIA
     Route: 065
     Dates: start: 20080621
  3. FOSFOMYCIN SODIUM [Suspect]
     Indication: PYREXIA
     Route: 065
     Dates: start: 20080621
  4. ROXITHROMYCIN [Suspect]
     Indication: PYREXIA
     Route: 065
     Dates: start: 20080621
  5. RIBAVIRIN [Suspect]
     Indication: PYREXIA
     Route: 065
     Dates: start: 20080621
  6. RIBAVIRIN [Suspect]
     Indication: PYREXIA
     Dosage: UNK
     Route: 065
     Dates: start: 20080621

REACTIONS (4)
  - Erythema multiforme [Recovered/Resolved]
  - Hand-foot-and-mouth disease [Unknown]
  - Pharyngitis [Unknown]
  - Conjunctivitis [Unknown]
